FAERS Safety Report 6545511-8 (Version None)
Quarter: 2010Q1

REPORT INFORMATION
  Report Type: 
  Country: None (occurrence: None)
  Receive Date: 20100119
  Receipt Date: 20100104
  Transmission Date: 20100710
  Serious: Yes (Death)
  Sender: FDA-Public Use
  Company Number: 2010AC000007

PATIENT
  Age: 74 Year
  Sex: Male
  Weight: 81.1939 kg

DRUGS (20)
  1. DIGOXIN [Suspect]
     Dosage: 0.062 MG;QD;PO
     Route: 048
     Dates: start: 20070104, end: 20070601
  2. ASPIRIN [Concomitant]
  3. ZOCOR [Concomitant]
  4. ALDACTONE [Concomitant]
  5. NAMENDA [Concomitant]
  6. SYNTHROID [Concomitant]
  7. COREG [Concomitant]
  8. ZESTRIL [Concomitant]
  9. RISPERDAL [Concomitant]
  10. ARICEPT [Concomitant]
  11. DUONEB [Concomitant]
  12. ACETAMINOPHEN [Concomitant]
  13. ROBITUSSIN [Concomitant]
  14. INSULIN [Concomitant]
  15. LEVAQUIN [Concomitant]
  16. ZITHROMAX [Concomitant]
  17. SPIRONOLACTONE [Concomitant]
  18. ISOSORBIDE [Concomitant]
  19. LISINOPRIL [Concomitant]
  20. POTASSIUM CHLORIDE [Concomitant]

REACTIONS (8)
  - CARDIAC FAILURE CONGESTIVE [None]
  - CARDIO-RESPIRATORY ARREST [None]
  - CEREBROVASCULAR ACCIDENT [None]
  - ECONOMIC PROBLEM [None]
  - INJURY [None]
  - PNEUMONIA [None]
  - SURGERY [None]
  - UNEVALUABLE EVENT [None]
